FAERS Safety Report 4409470-6 (Version None)
Quarter: 2004Q3

REPORT INFORMATION
  Report Type: 
  Country: None (occurrence: None)
  Receive Date: 20040723
  Receipt Date: 20040713
  Transmission Date: 20050211
  Serious: Yes (Other)
  Sender: FDA-Public Use
  Company Number: 2004047426

PATIENT
  Age: 66 Year
  Sex: Male
  Weight: 87.9978 kg

DRUGS (10)
  1. VIAGRA [Suspect]
     Indication: ERECTILE DYSFUNCTION
     Dosage: 50 MG , ORAL
     Route: 048
     Dates: start: 20010101
  2. ALL OTHER THERAPEUTIC PRODUCTS [Concomitant]
  3. EXTENDRYL (CHLORPHENAMINE MALEATE, HYOSCINE METHONITRATE, PHENYLEPHRIN [Concomitant]
  4. ATORVASTATIN CALCIUM [Concomitant]
  5. ROFECOXIB [Concomitant]
  6. COLCHICINE [Concomitant]
  7. ASPIRIN [Concomitant]
  8. DIAZEPAM [Concomitant]
  9. MULTIVITAMIN [Concomitant]
  10. ALLOPURINOL [Concomitant]

REACTIONS (1)
  - ATRIAL FLUTTER [None]
